FAERS Safety Report 16554123 (Version 2)
Quarter: 2019Q3

REPORT INFORMATION
  Report Type: Spontaneous
  Country: NL (occurrence: NL)
  Receive Date: 20190710
  Receipt Date: 20190718
  Transmission Date: 20191004
  Serious: Yes (Hospitalization, Other)
  Sender: FDA-Public Use
  Company Number: NL-ASTRAZENECA-2019SE96237

PATIENT
  Age: 66 Year
  Sex: Female

DRUGS (22)
  1. LISINOPRIL. [Suspect]
     Active Substance: LISINOPRIL
     Route: 048
     Dates: start: 20171122
  2. OXAZEPAM. [Concomitant]
     Active Substance: OXAZEPAM
  3. LABETALOL [Concomitant]
     Active Substance: LABETALOL\LABETALOL HYDROCHLORIDE
     Dosage: 200 MG
  4. TRANYLCYPROMINE [Interacting]
     Active Substance: TRANYLCYPROMINE
     Indication: DEPRESSION
     Route: 065
     Dates: start: 20180119
  5. TRANYLCYPROMINE [Interacting]
     Active Substance: TRANYLCYPROMINE
     Indication: DEPRESSION
     Route: 065
     Dates: start: 20171201
  6. TRANYLCYPROMINE [Interacting]
     Active Substance: TRANYLCYPROMINE
     Indication: DEPRESSION
     Route: 065
     Dates: start: 20171207
  7. MOVICOLON [Concomitant]
     Active Substance: POLYETHYLENE GLYCOL 3350\POTASSIUM CHLORIDE\SODIUM BICARBONATE\SODIUM CHLORIDE
     Dates: start: 20171128
  8. DEPAKINE [Concomitant]
     Active Substance: VALPROATE SODIUM
     Indication: MENTAL DISORDER
  9. SEROQUEL [Suspect]
     Active Substance: QUETIAPINE FUMARATE
     Dosage: 200.0MG UNKNOWN
     Route: 048
  10. SEROQUEL [Suspect]
     Active Substance: QUETIAPINE FUMARATE
     Dosage: 50.0MG UNKNOWN
     Route: 048
     Dates: start: 20171122
  11. SEROQUEL [Suspect]
     Active Substance: QUETIAPINE FUMARATE
     Dosage: 25.0MG UNKNOWN
     Route: 048
  12. TRANYLCYPROMINE [Interacting]
     Active Substance: TRANYLCYPROMINE
     Indication: DEPRESSION
     Route: 065
     Dates: start: 20171212
  13. VENTOLIN [Concomitant]
     Active Substance: ALBUTEROL SULFATE
     Dosage: 200UG/INHAL DAILY
     Dates: start: 20171205
  14. FLIXOTIDE [Concomitant]
     Active Substance: FLUTICASONE PROPIONATE
     Dosage: 500UG/INHAL DAILY
     Dates: start: 20171116
  15. FLUTICASONE PROPIONATE. [Concomitant]
     Active Substance: FLUTICASONE PROPIONATE
     Dosage: 100UG/INHAL DAILY
     Dates: start: 20171113
  16. LORAZEPAM. [Concomitant]
     Active Substance: LORAZEPAM
  17. OMEPRAZOLE. [Concomitant]
     Active Substance: OMEPRAZOLE
     Indication: GASTRITIS PROPHYLAXIS
     Dates: start: 20171128
  18. TRANYLCYPROMINE [Interacting]
     Active Substance: TRANYLCYPROMINE
     Indication: DEPRESSION
     Route: 065
     Dates: start: 20160916
  19. TRANYLCYPROMINE [Interacting]
     Active Substance: TRANYLCYPROMINE
     Indication: DEPRESSION
     Dosage: 2 DD 50, 40 MG (90 MG DAILY)
     Route: 065
     Dates: start: 20180928
  20. DESLORATADINE. [Concomitant]
     Active Substance: DESLORATADINE
     Dates: start: 20171128
  21. NOZINAN [Concomitant]
     Active Substance: LEVOMEPROMAZINE
     Dates: start: 20171013
  22. LORAZEPAM. [Concomitant]
     Active Substance: LORAZEPAM
     Dates: start: 20171123

REACTIONS (10)
  - Blood pressure fluctuation [Recovered/Resolved]
  - Potentiating drug interaction [Unknown]
  - Hypertensive crisis [Recovered/Resolved]
  - Syncope [Recovered/Resolved]
  - Dry mouth [Recovered/Resolved]
  - Orthostatic hypotension [Unknown]
  - Diarrhoea [Unknown]
  - Therapeutic response unexpected [Recovered/Resolved]
  - Prescribed overdose [Not Recovered/Not Resolved]
  - Contraindicated product administered [Unknown]

NARRATIVE: CASE EVENT DATE: 201609
